FAERS Safety Report 4343874-5 (Version None)
Quarter: 2004Q2

REPORT INFORMATION
  Report Type: 
  Country: None (occurrence: None)
  Receive Date: 20040419
  Receipt Date: 20040406
  Transmission Date: 20050107
  Serious: Yes (Hospitalization, Other)
  Sender: FDA-Public Use
  Company Number: 200410320BVD

PATIENT
  Age: 63 Year
  Sex: Female
  Weight: 60 kg

DRUGS (4)
  1. AVELOX [Suspect]
     Indication: BRONCHITIS
     Dosage: 400 MG, TOTAL DAILY, ORAL
     Route: 048
     Dates: start: 20040218, end: 20040219
  2. AVELOX [Suspect]
     Indication: SINUSITIS
     Dosage: 400 MG, TOTAL DAILY, ORAL
     Route: 048
     Dates: start: 20040218, end: 20040219
  3. PARACODIN [Concomitant]
  4. SINUPRET [Concomitant]

REACTIONS (5)
  - MITRAL VALVE STENOSIS [None]
  - PALPITATIONS [None]
  - SINUS BRADYCARDIA [None]
  - SYNCOPE [None]
  - TACHYARRHYTHMIA [None]
